FAERS Safety Report 20022154 (Version 1)
Quarter: 2021Q4

REPORT INFORMATION
  Report Type: Spontaneous
  Country: US (occurrence: US)
  Receive Date: 20211102
  Receipt Date: 20211102
  Transmission Date: 20220303
  Serious: Yes (Hospitalization, Other)
  Sender: FDA-Public Use
  Company Number: US-AUROBINDO-AUR-APL-2021-043617

PATIENT
  Age: 55 Year
  Sex: Male

DRUGS (1)
  1. GLIPIZIDE [Suspect]
     Active Substance: GLIPIZIDE
     Indication: Product used for unknown indication
     Dosage: UNK
     Route: 065

REACTIONS (9)
  - Amnesia [Recovered/Resolved]
  - Disorientation [Unknown]
  - Seizure [Unknown]
  - Hypoxia [Unknown]
  - Hypoglycaemia [Unknown]
  - Perseveration [Unknown]
  - Injury [Unknown]
  - Disinhibition [Unknown]
  - Accidental overdose [Unknown]
